FAERS Safety Report 23510561 (Version 1)
Quarter: 2024Q1

REPORT INFORMATION
  Report Type: Spontaneous
  Country: US (occurrence: US)
  Receive Date: 20240211
  Receipt Date: 20240211
  Transmission Date: 20240410
  Serious: No
  Sender: FDA-Public Use
  Company Number: US-AIMMUNE THERAPEUTICS, INC.-2023AIMT01070

PATIENT

DRUGS (4)
  1. PALFORZIA [Suspect]
     Active Substance: PEANUT
     Indication: Food allergy
     Dosage: IDE (0.5MG-6MG),  ONCE
     Route: 048
     Dates: start: 20230427, end: 20230427
  2. PALFORZIA [Suspect]
     Active Substance: PEANUT
     Dosage: 120 MG, 1X/DAY
     Route: 048
     Dates: start: 20230821
  3. PALFORZIA [Suspect]
     Active Substance: PEANUT
     Dosage: 120 MG, ONCE, LAST DOSE PRIOR TO EVENTS
     Route: 048
  4. PALFORZIA [Suspect]
     Active Substance: PEANUT
     Dosage: 20 MG, 1X/DAY DOSE DECREASED
     Route: 048
     Dates: start: 20231002

REACTIONS (5)
  - Illness [Recovered/Resolved]
  - Productive cough [Recovered/Resolved]
  - Drug dose titration not performed [Recovered/Resolved]
  - Urticaria [Recovered/Resolved]
  - Abdominal discomfort [Recovered/Resolved]

NARRATIVE: CASE EVENT DATE: 20230829
